FAERS Safety Report 7669096-8 (Version None)
Quarter: 2011Q3

REPORT INFORMATION
  Report Type: 
  Country: None (occurrence: None)
  Receive Date: 20110808
  Receipt Date: 20110728
  Transmission Date: 20111222
  Serious: Yes (Disabling)
  Sender: FDA-Public Use
  Company Number: JP-ASTRAZENECA-2011SE37404

PATIENT
  Age: 72 Year
  Sex: Female
  Weight: 56 kg

DRUGS (8)
  1. AMARYL [Concomitant]
     Indication: DIABETES MELLITUS
     Route: 048
     Dates: start: 20101112
  2. ASPIRIN [Concomitant]
     Indication: CEREBRAL INFARCTION
     Route: 048
     Dates: start: 20090302
  3. JANUVIA [Suspect]
     Indication: DIABETES MELLITUS
     Route: 048
     Dates: start: 20110221, end: 20110614
  4. MUCOSTA [Concomitant]
     Indication: GASTRITIS
     Route: 048
     Dates: start: 20020424
  5. ALLORIN [Concomitant]
     Indication: HYPERURICAEMIA
     Route: 048
     Dates: start: 20100924
  6. CRESTOR [Suspect]
     Indication: HYPERCHOLESTEROLAEMIA
     Route: 048
     Dates: start: 20110418, end: 20110507
  7. CALBLOCK [Concomitant]
     Indication: HYPERTENSION
     Route: 048
     Dates: start: 20100824
  8. CRESTOR [Suspect]
     Dosage: DOSE INCREASED
     Route: 048
     Dates: start: 20110514, end: 20110707

REACTIONS (2)
  - RENAL IMPAIRMENT [None]
  - DIABETIC NEPHROPATHY [None]
